FAERS Safety Report 4946908-X (Version None)
Quarter: 2006Q1

REPORT INFORMATION
  Report Type: 
  Country: None (occurrence: None)
  Receive Date: 20060201
  Receipt Date: 20051208
  Transmission Date: 20060701
  Serious: No
  Sender: FDA-Public Use
  Company Number: 2005PV005644

PATIENT
  Age: 59 Year
  Sex: Female
  Weight: 63.5036 kg

DRUGS (8)
  1. BYETTA [Suspect]
     Indication: DIABETES MELLITUS NON-INSULIN-DEPENDENT
     Dosage: 5 MCG;BID;SC   10 MCG;SC
     Route: 058
     Dates: start: 20051117, end: 20051216
  2. BYETTA [Suspect]
     Indication: DIABETES MELLITUS NON-INSULIN-DEPENDENT
     Dosage: 5 MCG;BID;SC   10 MCG;SC
     Route: 058
     Dates: start: 20051217
  3. ASPIRIN [Concomitant]
  4. METFORMIN [Concomitant]
  5. AVANDIA [Concomitant]
  6. AMARYL [Concomitant]
  7. GLUCOPHAGE [Concomitant]
  8. FIBERCON [Concomitant]

REACTIONS (10)
  - CHILLS [None]
  - CONTUSION [None]
  - ERUCTATION [None]
  - FAECES HARD [None]
  - INFREQUENT BOWEL MOVEMENTS [None]
  - INJECTION SITE BRUISING [None]
  - INJECTION SITE ERYTHEMA [None]
  - INJECTION SITE HAEMORRHAGE [None]
  - INJECTION SITE PAIN [None]
  - NAUSEA [None]
